FAERS Safety Report 12446349 (Version 1)
Quarter: 2016Q2

REPORT INFORMATION
  Report Type: Report from Study
  Country: JP (occurrence: JP)
  Receive Date: 20160608
  Receipt Date: 20160608
  Transmission Date: 20160815
  Serious: Yes (Other)
  Sender: FDA-Public Use
  Company Number: JP-BRISTOL-MYERS SQUIBB COMPANY-BMS-2016-044598

PATIENT
  Age: 8 Decade
  Sex: Female
  Weight: 49 kg

DRUGS (1)
  1. APIXABAN [Suspect]
     Active Substance: APIXABAN
     Indication: CEREBROVASCULAR ACCIDENT PROPHYLAXIS
     Dosage: 5 MG, BID
     Route: 048
     Dates: start: 20140205, end: 20150907

REACTIONS (2)
  - Metastases to bone [Unknown]
  - Rib excision [Unknown]

NARRATIVE: CASE EVENT DATE: 20150801
